FAERS Safety Report 11201798 (Version 2)
Quarter: 2015Q3

REPORT INFORMATION
  Report Type: Spontaneous
  Country: US (occurrence: None)
  Receive Date: 20150617
  Receipt Date: 20150909
  Transmission Date: 20151125
  Serious: Yes (Hospitalization)
  Sender: FDA-Public Use
  Company Number: RAP-001042-2015

PATIENT
  Age: 21 Month
  Sex: Male

DRUGS (1)
  1. PROCYSBI DELAYED-RELEASE [Suspect]
     Active Substance: CYSTEAMINE BITARTRATE
     Indication: CYSTINOSIS
     Dosage: G-TUBE
     Route: 048
     Dates: start: 20150528

REACTIONS (1)
  - Device occlusion [None]

NARRATIVE: CASE EVENT DATE: 20150528
